FAERS Safety Report 12519158 (Version 1)
Quarter: 2016Q2

REPORT INFORMATION
  Report Type: Spontaneous
  Country: IL (occurrence: IL)
  Receive Date: 20160630
  Receipt Date: 20160630
  Transmission Date: 20160815
  Serious: Yes (Other)
  Sender: FDA-Public Use
  Company Number: IL-ASTRAZENECA-2016SE70215

PATIENT
  Sex: Male

DRUGS (4)
  1. GILOTRIF [Concomitant]
     Active Substance: AFATINIB
  2. CLEXAN [Concomitant]
     Indication: VENTRICULAR FIBRILLATION
  3. RYTMEX [Concomitant]
     Indication: VENTRICULAR FIBRILLATION
  4. TAGRISSO [Suspect]
     Active Substance: OSIMERTINIB
     Indication: NEOPLASM MALIGNANT
     Route: 048
     Dates: start: 20160526

REACTIONS (2)
  - Ventricular fibrillation [Unknown]
  - Pain in extremity [Unknown]

NARRATIVE: CASE EVENT DATE: 20160621
